FAERS Safety Report 13603572 (Version 7)
Quarter: 2018Q2

REPORT INFORMATION
  Report Type: Spontaneous
  Country: JP (occurrence: JP)
  Receive Date: 20170601
  Receipt Date: 20180604
  Transmission Date: 20180711
  Serious: Yes (Death, Other)
  Sender: FDA-Public Use
  Company Number: JP-009507513-1704JPN000981J

PATIENT
  Age: 54 Year
  Sex: Male
  Weight: 87 kg

DRUGS (4)
  1. LIXIANA [Suspect]
     Active Substance: EDOXABAN TOSYLATE
     Indication: EMBOLISM VENOUS
     Dosage: UNK
     Route: 048
  2. UNASYN [Suspect]
     Active Substance: AMPICILLIN SODIUM\SULBACTAM SODIUM
     Dosage: 3 MG, BID
     Route: 051
  3. KEYTRUDA [Suspect]
     Active Substance: PEMBROLIZUMAB
     Indication: LUNG ADENOCARCINOMA
     Dosage: 200 MG, Q3W
     Route: 041
     Dates: start: 20170309, end: 20170420
  4. RINDERON V [Concomitant]
     Active Substance: BETAMETHASONE VALERATE
     Indication: LUNG ADENOCARCINOMA
     Dosage: 6 MG, QD
     Route: 048
     Dates: start: 20170330, end: 20170519

REACTIONS (7)
  - Cerebral infarction [Fatal]
  - Blood urea increased [Not Recovered/Not Resolved]
  - Pneumonia bacterial [Recovered/Resolved]
  - Diarrhoea [Recovered/Resolved]
  - Submaxillary gland enlargement [Not Recovered/Not Resolved]
  - Epistaxis [Recovered/Resolved]
  - Back pain [Not Recovered/Not Resolved]

NARRATIVE: CASE EVENT DATE: 20170329
